FAERS Safety Report 5909874-6 (Version None)
Quarter: 2008Q4

REPORT INFORMATION
  Report Type: 
  Country: None (occurrence: None)
  Receive Date: 20081003
  Receipt Date: 20081003
  Transmission Date: 20090506
  Serious: Yes (Other)
  Sender: FDA-Public Use
  Company Number: None

PATIENT
  Sex: Female

DRUGS (1)
  1. PREMPRO [Suspect]
     Dates: start: 20080801, end: 20080801

REACTIONS (3)
  - BREAST TENDERNESS [None]
  - PRODUCT QUALITY ISSUE [None]
  - VAGINAL HAEMORRHAGE [None]
